FAERS Safety Report 8645988 (Version 5)
Quarter: 2013Q2

REPORT INFORMATION
  Report Type: Spontaneous
  Country: US (occurrence: US)
  Receive Date: 20120702
  Receipt Date: 20130401
  Transmission Date: 20140414
  Serious: Yes (Hospitalization, Disabling, Other)
  Sender: FDA-Public Use
  Company Number: US-009507513-1206USA04713

PATIENT
  Sex: Female
  Weight: 99.32 kg

DRUGS (5)
  1. FOSAMAX [Suspect]
     Indication: OSTEOPOROSIS
     Dosage: 10 MG, QD
     Route: 048
     Dates: start: 19980801, end: 20070101
  2. FOSAMAX [Suspect]
     Dosage: 70 MG, QW
     Route: 048
     Dates: start: 20050314, end: 20060105
  3. BONIVA [Suspect]
     Indication: OSTEOPOROSIS
     Dosage: 150 MG, UNK
     Route: 048
     Dates: start: 20070102, end: 20081231
  4. VITAMINS (UNSPECIFIED) [Concomitant]
     Indication: PROPHYLAXIS
     Dosage: UNK, QD
     Dates: start: 19900101
  5. HORMONES (UNSPECIFIED) [Concomitant]
     Dosage: UNK
     Dates: start: 1985, end: 2003

REACTIONS (34)
  - Femur fracture [Unknown]
  - Osteoporosis [Unknown]
  - Stress fracture [Unknown]
  - Femur fracture [Unknown]
  - Closed fracture manipulation [Unknown]
  - Low turnover osteopathy [Unknown]
  - Deep vein thrombosis [Unknown]
  - Aortic valve replacement [Unknown]
  - Osteoarthritis [Unknown]
  - Knee arthroplasty [Unknown]
  - Joint contracture [Unknown]
  - Foot fracture [Recovered/Resolved]
  - Foot fracture [Unknown]
  - Foot operation [Unknown]
  - Hypertension [Unknown]
  - Diabetes mellitus [Unknown]
  - Urinary tract infection [Unknown]
  - Pneumonia [Unknown]
  - Postoperative wound infection [Recovering/Resolving]
  - Wound dehiscence [Recovering/Resolving]
  - Fall [Unknown]
  - Muscular weakness [Unknown]
  - Fall [Unknown]
  - Fractured coccyx [Unknown]
  - Urinary tract infection [Unknown]
  - Incision site cellulitis [Unknown]
  - Contusion [Unknown]
  - Cerebral small vessel ischaemic disease [Unknown]
  - Hypertonic bladder [Unknown]
  - Foot fracture [Unknown]
  - Oesophagitis [Unknown]
  - Arthralgia [Unknown]
  - Pain in extremity [Unknown]
  - Pain in extremity [Unknown]
